FAERS Safety Report 16184998 (Version 1)
Quarter: 2019Q2

REPORT INFORMATION
  Report Type: Spontaneous
  Country: CA (occurrence: CA)
  Receive Date: 20190411
  Receipt Date: 20190411
  Transmission Date: 20190711
  Serious: Yes (Other)
  Sender: FDA-Public Use
  Company Number: CA-SAOL THERAPEUTICS-2018SAO01142

PATIENT
  Age: 23 Year
  Sex: Female
  Weight: 60 kg

DRUGS (2)
  1. MATERNAL VITAMINS [Concomitant]
     Active Substance: VITAMINS
  2. WINRHO SDF [Suspect]
     Active Substance: HUMAN RHO(D) IMMUNE GLOBULIN
     Indication: PROPHYLAXIS AGAINST RH ISOIMMUNISATION
     Dosage: 300 ?G, ONCE (FRACTION 4/4)
     Route: 042
     Dates: start: 20181204, end: 20181204

REACTIONS (4)
  - Urticaria [Recovered/Resolved]
  - Premature separation of placenta [Unknown]
  - Anaphylactic shock [Recovered/Resolved]
  - Exposure during pregnancy [Recovered/Resolved]

NARRATIVE: CASE EVENT DATE: 20181204
